FAERS Safety Report 7677515-6 (Version None)
Quarter: 2011Q3

REPORT INFORMATION
  Report Type: 
  Country: None (occurrence: None)
  Receive Date: 20110811
  Receipt Date: 20110805
  Transmission Date: 20111222
  Serious: Yes (Disabling)
  Sender: FDA-Public Use
  Company Number: JP-EISAI INC-E2020-09546-SPO-JP

PATIENT
  Age: 85 Year
  Sex: Female
  Weight: 38 kg

DRUGS (9)
  1. ARICEPT [Suspect]
     Indication: DEMENTIA
     Route: 048
     Dates: start: 20110721, end: 20110722
  2. SENNARIDE [Concomitant]
     Route: 048
  3. DIOVAN [Concomitant]
     Route: 048
  4. LEVOTHYROXINE SODIUM [Concomitant]
     Route: 048
  5. NAUZELIN [Concomitant]
  6. RABEPRAZOLE SODIUM [Concomitant]
     Route: 048
  7. FRANDOL S [Concomitant]
  8. SULPIRIDE [Concomitant]
  9. SOLDEM 3AG [Concomitant]

REACTIONS (1)
  - VENTRICULAR TACHYCARDIA [None]
